FAERS Safety Report 9375873 (Version 1)
Quarter: 2013Q2

REPORT INFORMATION
  Report Type: Other
  Country: GB (occurrence: GB)
  Receive Date: 20130628
  Receipt Date: 20130628
  Transmission Date: 20140414
  Serious: Yes (Other)
  Sender: FDA-Public Use
  Company Number: GB-WATSON-2013-11788

PATIENT
  Age: 56 Year
  Sex: Female

DRUGS (4)
  1. RISPERIDONE (UNKNOWN) [Suspect]
     Indication: SCHIZOPHRENIA
     Dosage: 6 MG, UNKNOWN
     Route: 048
     Dates: start: 20130523
  2. RISPERIDONE (UNKNOWN) [Suspect]
     Dosage: 4 MG, UNKNOWN
     Route: 048
     Dates: start: 20130409
  3. XEPLION /05724801/ [Suspect]
     Indication: SCHIZOPHRENIA
     Dosage: 50 MG, UNK
     Route: 030
     Dates: start: 20130509
  4. XEPLION [Suspect]
     Dosage: 100 MG, UNKNOWN
     Route: 030
     Dates: start: 20130502

REACTIONS (7)
  - Renal impairment [Recovering/Resolving]
  - Hypokalaemia [Recovering/Resolving]
  - Blood prolactin increased [Not Recovered/Not Resolved]
  - Drug dose omission [Unknown]
  - Mental impairment [Unknown]
  - Incorrect dose administered [Unknown]
  - Medication error [Not Recovered/Not Resolved]
